FAERS Safety Report 6820901-4 (Version None)
Quarter: 2010Q3

REPORT INFORMATION
  Report Type: 
  Country: None (occurrence: None)
  Receive Date: 20100707
  Receipt Date: 20070827
  Transmission Date: 20110219
  Serious: Yes (Other)
  Sender: FDA-Public Use
  Company Number: US-PFIZER INC-2007058202

PATIENT
  Sex: Male
  Weight: 79.4 kg

DRUGS (1)
  1. ZOLOFT [Suspect]
     Indication: ANGER
     Dates: start: 20070301, end: 20070709

REACTIONS (1)
  - PARAESTHESIA [None]
